FAERS Safety Report 8438262-6 (Version None)
Quarter: 2012Q2

REPORT INFORMATION
  Report Type: 
  Country: None (occurrence: None)
  Receive Date: 20120614
  Receipt Date: 20120612
  Transmission Date: 20120825
  Serious: Yes (Disabling)
  Sender: FDA-Public Use
  Company Number: PHHY2012GB050451

PATIENT
  Age: 78 Year
  Sex: Female

DRUGS (6)
  1. AMIODARONE HCL [Suspect]
     Dosage: 200 MG, BID
     Dates: start: 20120516
  2. DIGOXIN [Concomitant]
     Dosage: 125 UG, QD
  3. FUROSEMIDE [Concomitant]
     Dosage: 40 MG, QD
  4. WARFARIN SODIUM [Concomitant]
     Dosage: 3 MG, QD
  5. BISOPROLOL FUMARATE [Concomitant]
     Dosage: 10 MG, QD
  6. LANSOPRAZOLE [Concomitant]
     Dosage: 30 MG, QD

REACTIONS (6)
  - TONGUE COATED [None]
  - VISION BLURRED [None]
  - CORNEAL OPACITY [None]
  - DRY MOUTH [None]
  - DYSGEUSIA [None]
  - TONGUE DRY [None]
